FAERS Safety Report 8090557 (Version 6)
Quarter: 2014Q4

REPORT INFORMATION
  Report Type: Spontaneous
  Country: US (occurrence: US)
  Receive Date: 20110815
  Receipt Date: 20141215
  Transmission Date: 20150529
  Serious: No
  Sender: FDA-Public Use
  Company Number: US-ASTRAZENECA-2011SE47177

PATIENT
  Age: 64 Year
  Sex: Female
  Weight: 73.5 kg

DRUGS (5)
  1. CRESTOR [Suspect]
     Active Substance: ROSUVASTATIN CALCIUM
     Route: 048
  2. TOPROL XL [Suspect]
     Active Substance: METOPROLOL SUCCINATE
     Indication: HYPERTENSION
     Dosage: 50 MG IN THE MORNING AND 25 MG AT NIGHT
     Route: 048
  3. TOPROL XL [Suspect]
     Active Substance: METOPROLOL SUCCINATE
     Indication: HYPERTENSION
     Route: 048
  4. TOPROL XL [Suspect]
     Active Substance: METOPROLOL SUCCINATE
     Indication: HYPERTENSION
     Route: 048
     Dates: start: 2012
  5. METOPROLOL UNSPECIFIED [Suspect]
     Active Substance: METOPROLOL
     Indication: BLOOD PRESSURE
     Dosage: BID
     Route: 048

REACTIONS (9)
  - Hypertension [Unknown]
  - Blood pressure fluctuation [Unknown]
  - Adverse drug reaction [Unknown]
  - Blood pressure inadequately controlled [Unknown]
  - Emotional disorder [Unknown]
  - Dizziness [Unknown]
  - Off label use [Not Recovered/Not Resolved]
  - Hypoaesthesia [Recovered/Resolved]
  - Drug dispensing error [Unknown]

NARRATIVE: CASE EVENT DATE: 2012
